FAERS Safety Report 8549840-8 (Version None)
Quarter: 2012Q3

REPORT INFORMATION
  Report Type: 
  Country: None (occurrence: None)
  Receive Date: 20120718
  Receipt Date: 20120707
  Transmission Date: 20120928
  Serious: Yes (Hospitalization)
  Sender: FDA-Public Use
  Company Number: AUR-APL-2012-02934

PATIENT
  Age: 69 Year
  Sex: Female
  Weight: 79.36 kg

DRUGS (19)
  1. VENLAFAXINE HCL [Suspect]
     Indication: PRODUCT USED FOR UNKNOWN INDICATION
     Dosage: SEE IMAGE
     Dates: start: 20110904, end: 20110907
  2. VENLAFAXINE HCL [Suspect]
     Indication: PRODUCT USED FOR UNKNOWN INDICATION
     Dosage: SEE IMAGE
     Dates: start: 20110908, end: 20110928
  3. VENLAFAXINE HCL [Suspect]
     Indication: PRODUCT USED FOR UNKNOWN INDICATION
     Dosage: SEE IMAGE
     Dates: start: 20080615, end: 20110903
  4. VENLAFAXINE HCL [Suspect]
     Indication: PRODUCT USED FOR UNKNOWN INDICATION
     Dosage: SEE IMAGE
     Dates: start: 20111003
  5. VENLAFAXINE HCL [Suspect]
     Indication: PRODUCT USED FOR UNKNOWN INDICATION
     Dosage: SEE IMAGE
     Dates: start: 20110929, end: 20111002
  6. CALCARB-VITD (CALCARB WITH VITAMIN D) [Concomitant]
  7. FUROSEMIDE [Concomitant]
  8. ACETAMINOPHEN [Concomitant]
  9. METOPROLOL TARTRATE [Concomitant]
  10. LISINOPRIL [Concomitant]
  11. BLINDED THERAPY [Suspect]
     Indication: PRODUCT USED FOR UNKNOWN INDICATION
     Dosage: 2 MG (2 MG, 1 IN 1 D), 5 MG (5 MG, 1 IN 1 D), 7 MG (7 MG, 1 IN 1 D), 10 MG (10 MG, 1 IN 1 D)
     Dates: start: 20111220
  12. BLINDED THERAPY [Suspect]
     Indication: PRODUCT USED FOR UNKNOWN INDICATION
     Dosage: 2 MG (2 MG, 1 IN 1 D), 5 MG (5 MG, 1 IN 1 D), 7 MG (7 MG, 1 IN 1 D), 10 MG (10 MG, 1 IN 1 D)
     Dates: start: 20111213, end: 20111219
  13. BLINDED THERAPY [Suspect]
     Indication: PRODUCT USED FOR UNKNOWN INDICATION
     Dosage: 2 MG (2 MG, 1 IN 1 D), 5 MG (5 MG, 1 IN 1 D), 7 MG (7 MG, 1 IN 1 D), 10 MG (10 MG, 1 IN 1 D)
     Dates: start: 20111129, end: 20111205
  14. BLINDED THERAPY [Suspect]
     Indication: PRODUCT USED FOR UNKNOWN INDICATION
     Dosage: 2 MG (2 MG, 1 IN 1 D), 5 MG (5 MG, 1 IN 1 D), 7 MG (7 MG, 1 IN 1 D), 10 MG (10 MG, 1 IN 1 D)
     Dates: start: 20111206, end: 20111212
  15. ALPRAZOLAM [Concomitant]
  16. CRESTOR [Concomitant]
  17. WARFARIN SODIUM [Concomitant]
  18. DOFETILIDE (DOFETILIDE) [Concomitant]
  19. DILTIAZEM [Concomitant]

REACTIONS (16)
  - SENSORY DISTURBANCE [None]
  - ATRIAL FIBRILLATION [None]
  - CHEST PAIN [None]
  - ANXIETY [None]
  - BLOOD POTASSIUM DECREASED [None]
  - EMOTIONAL DISORDER [None]
  - DRUG DOSE OMISSION [None]
  - DRUG WITHDRAWAL SYNDROME [None]
  - HEART RATE INCREASED [None]
  - DEATH OF RELATIVE [None]
  - DYSPNOEA [None]
  - HYPERTENSION [None]
  - ELECTROCARDIOGRAM QT PROLONGED [None]
  - CHEST DISCOMFORT [None]
  - STRESS [None]
  - BLOOD SODIUM DECREASED [None]
